FAERS Safety Report 9464192 (Version 2)
Quarter: 2013Q3

REPORT INFORMATION
  Report Type: Spontaneous
  Country: CA (occurrence: CA)
  Receive Date: 20130819
  Receipt Date: 20130925
  Transmission Date: 20140515
  Serious: Yes (Other)
  Sender: FDA-Public Use
  Company Number: CA-SANOFI-AVENTIS-2013SA081515

PATIENT
  Age: 55 Year
  Sex: Female

DRUGS (2)
  1. AVAPRO [Suspect]
     Indication: CONGENITAL CYSTIC KIDNEY DISEASE
     Route: 065
     Dates: start: 20130201, end: 20130222
  2. CILAZAPRIL/HYDROCHLOROTHIAZIDE [Suspect]
     Indication: CONGENITAL CYSTIC KIDNEY DISEASE
     Route: 065
     Dates: start: 20030101, end: 20130101

REACTIONS (1)
  - Gamma-glutamyltransferase increased [Unknown]
